FAERS Safety Report 4800030-1 (Version None)
Quarter: 2005Q4

REPORT INFORMATION
  Report Type: 
  Country: None (occurrence: None)
  Receive Date: 20051017
  Receipt Date: 20051006
  Transmission Date: 20060501
  Serious: Yes (Other)
  Sender: FDA-Public Use
  Company Number: US-JNJFOC-20051001390

PATIENT
  Sex: Female
  Weight: 83.46 kg

DRUGS (23)
  1. INFLIXIMAB [Suspect]
     Indication: RHEUMATOID ARTHRITIS
     Route: 042
  2. LOTREL [Concomitant]
  3. LOTREL [Concomitant]
     Dosage: 5/10 TWICE DAILY
  4. FOLIC ACID [Concomitant]
  5. HYDROXYCHLOROQUINE SULFATE [Concomitant]
  6. HYDROCHLOROTHIAZIDE [Concomitant]
  7. PREDNISONE [Concomitant]
  8. ALPRAZOLAM [Concomitant]
  9. CLARINEX [Concomitant]
  10. METHOTREXATE [Concomitant]
  11. POTASSIUM [Concomitant]
  12. MULTI-VITAMIN [Concomitant]
  13. MULTI-VITAMIN [Concomitant]
  14. MULTI-VITAMIN [Concomitant]
  15. MULTI-VITAMIN [Concomitant]
  16. MULTI-VITAMIN [Concomitant]
  17. MULTI-VITAMIN [Concomitant]
  18. MULTI-VITAMIN [Concomitant]
  19. MULTI-VITAMIN [Concomitant]
  20. MAGNESIUM [Concomitant]
  21. IRON [Concomitant]
  22. HYDROCODONE [Concomitant]
     Dosage: 10/500 AS NEEDED
  23. CALCIUM GLUCONATE [Concomitant]

REACTIONS (1)
  - HODGKIN'S DISEASE [None]
